FAERS Safety Report 9374659 (Version 2)
Quarter: 2013Q3

REPORT INFORMATION
  Report Type: Spontaneous
  Country: NL (occurrence: NL)
  Receive Date: 20130628
  Receipt Date: 20130905
  Transmission Date: 20140515
  Serious: Yes (Death)
  Sender: FDA-Public Use
  Company Number: NL-PFIZER INC-2013188424

PATIENT
  Age: 69 Year
  Sex: Female

DRUGS (6)
  1. SOMAVERT [Suspect]
     Indication: ACROMEGALY
     Dosage: 10 MG 4X/WEEK, 20 MG 3X/WEEK
     Route: 058
     Dates: start: 201012
  2. LISINOPRIL [Concomitant]
     Dosage: 10 MG, UNK
  3. METFORMIN [Concomitant]
     Dosage: 500 MG, UNK
  4. OCTREOTIDE [Concomitant]
     Dosage: 30 MG, UNK
  5. OMEPRAZOL [Concomitant]
     Dosage: 20 MG, UNK
  6. SIMVASTATIN [Concomitant]
     Dosage: UNK

REACTIONS (1)
  - Sudden death [Fatal]
